FAERS Safety Report 21921107 (Version 2)
Quarter: 2025Q1

REPORT INFORMATION
  Report Type: Spontaneous
  Country: IE (occurrence: IE)
  Receive Date: 20230127
  Receipt Date: 20250204
  Transmission Date: 20250408
  Serious: Yes (Other)
  Sender: FRESENIUS KABI
  Company Number: None

PATIENT
  Age: 22 Year
  Sex: Female
  Weight: 107 kg

DRUGS (8)
  1. VANCOMYCIN [Suspect]
     Active Substance: VANCOMYCIN
     Indication: Product used for unknown indication
     Route: 042
     Dates: start: 20230101
  2. PIPERACILLIN SODIUM\TAZOBACTAM SODIUM [Suspect]
     Active Substance: PIPERACILLIN SODIUM\TAZOBACTAM SODIUM
     Indication: Product used for unknown indication
     Dosage: 4.5G  THREE TIMES A DAY
     Route: 042
     Dates: start: 20230101
  3. CABLIVI [Suspect]
     Active Substance: CAPLACIZUMAB-YHDP
     Indication: Thrombotic thrombocytopenic purpura
     Route: 058
     Dates: start: 20230101
  4. PREDNISOLONE [Suspect]
     Active Substance: PREDNISOLONE
     Indication: Thrombotic thrombocytopenic purpura
     Dosage: 100MG DAILY PO
     Route: 048
     Dates: start: 20230101
  5. PLASMA PROTEIN FRACTION (HUMAN) [Suspect]
     Active Substance: PLASMA PROTEIN FRACTION (HUMAN)
     Indication: Thrombotic thrombocytopenic purpura
     Route: 042
     Dates: start: 20230103, end: 20230103
  6. PLASMA PROTEIN FRACTION (HUMAN) [Suspect]
     Active Substance: PLASMA PROTEIN FRACTION (HUMAN)
  7. PLASMA PROTEIN FRACTION (HUMAN) [Suspect]
     Active Substance: PLASMA PROTEIN FRACTION (HUMAN)
     Route: 042
     Dates: start: 20230103, end: 20230103
  8. CALCIUM GLUCONATE [Concomitant]
     Active Substance: CALCIUM GLUCONATE
     Indication: Product used for unknown indication
     Dates: start: 20230101

REACTIONS (2)
  - Abdominal pain [Recovered/Resolved]
  - Pyrexia [Recovered/Resolved]

NARRATIVE: CASE EVENT DATE: 20230103
